FAERS Safety Report 6533751-3 (Version None)
Quarter: 2010Q1

REPORT INFORMATION
  Report Type: 
  Country: None (occurrence: None)
  Receive Date: 20100111
  Receipt Date: 20090311
  Transmission Date: 20100710
  Serious: No
  Sender: FDA-Public Use
  Company Number: US-ABBOTT-09P-163-0562361-00

PATIENT
  Age: 64 Year
  Sex: Female

DRUGS (4)
  1. VICODIN [Suspect]
     Indication: PAIN
     Dosage: AT BEDTIME
     Dates: start: 20060101
  2. TYLENOL ER [Suspect]
     Indication: ARTHRITIS
     Dates: start: 19700101
  3. METFORMIN HYDROCHLORIDE [Concomitant]
     Indication: DRUG USE FOR UNKNOWN INDICATION
     Dates: start: 20060101
  4. ACTOS [Concomitant]
     Indication: DIABETES MELLITUS
     Dates: start: 20080101

REACTIONS (2)
  - DRUG ADMINISTRATION ERROR [None]
  - OVERDOSE [None]
